FAERS Safety Report 9010985 (Version 2)
Quarter: 2013Q1

REPORT INFORMATION
  Report Type: Spontaneous
  Country: US (occurrence: US)
  Receive Date: 20130109
  Receipt Date: 20130305
  Transmission Date: 20140127
  Serious: No
  Sender: FDA-Public Use
  Company Number: US-ASTRAZENECA-2013SE01086

PATIENT
  Age: 65 Year
  Sex: Male
  Weight: 78.5 kg

DRUGS (1)
  1. SYMBICORT PMDI [Suspect]
     Indication: CHRONIC OBSTRUCTIVE PULMONARY DISEASE
     Dosage: 160/4.5 MCG , TWO TIMES A DAY
     Route: 055
     Dates: start: 20110309

REACTIONS (1)
  - Pneumonia [Recovered/Resolved]
